FAERS Safety Report 6366229-0 (Version None)
Quarter: 2009Q3

REPORT INFORMATION
  Report Type: 
  Country: None (occurrence: None)
  Receive Date: 20090921
  Receipt Date: 20090907
  Transmission Date: 20100115
  Serious: Yes (Hospitalization)
  Sender: FDA-Public Use
  Company Number: US-RANBAXY-2009RR-27989

PATIENT
  Age: 45 Year
  Sex: Male

DRUGS (1)
  1. CLARITHROMYCIN [Suspect]
     Indication: ACUTE SINUSITIS
     Dosage: 500 MG, BID
     Route: 048

REACTIONS (1)
  - RHABDOMYOLYSIS [None]
